FAERS Safety Report 24417567 (Version 3)
Quarter: 2024Q4

REPORT INFORMATION
  Report Type: Report from Study
  Country: DE (occurrence: DE)
  Receive Date: 20241009
  Receipt Date: 20241108
  Transmission Date: 20250114
  Serious: Yes (Other)
  Sender: TEVA
  Company Number: DE-ROCHE-3182604

PATIENT
  Age: 45 Year
  Sex: Female
  Weight: 83 kg

DRUGS (10)
  1. PACLITAXEL [Suspect]
     Active Substance: PACLITAXEL
     Indication: Breast cancer
     Dosage: LAST DOSE ( 160 MG) PRIOR TO AE WAS ON 02/JUN2022. LAST DOSE (160 MG) ADMINISTER PRIOR TO AE WAS ...
     Route: 065
     Dates: start: 20220915, end: 20221110
  2. PACLITAXEL [Suspect]
     Active Substance: PACLITAXEL
     Indication: Breast cancer
     Dosage: LAST DOSE (160 MG) PRIOR TO AE WAS ON 02/JUN2022. LAST DOSE (160 MG) ADMINISTER PRIOR TO AE WAS O...
     Route: 065
     Dates: start: 20220602
  3. TRASTUZUMAB [Suspect]
     Active Substance: TRASTUZUMAB
     Indication: Breast cancer
     Dosage: TIME INTERVAL: CYCLICAL: LAST DOSE ( 600 MG) PRIOR TO EVENT WAS ON 02.06.2022. LAST DOSE (600 MG)...
     Route: 042
     Dates: start: 20220908, end: 20221209
  4. TRASTUZUMAB [Suspect]
     Active Substance: TRASTUZUMAB
     Indication: Breast cancer
     Dosage: TIME INTERVAL: CYCLICAL: LAST DOSE (600 MG) PRIOR TO EVENT WAS ON 02.06.2022. LAST DOSE (600 MG) ...
     Route: 041
     Dates: start: 20220602
  5. CARBOPLATIN [Suspect]
     Active Substance: CARBOPLATIN
     Indication: Breast cancer
     Dosage: TIME INTERVAL: CYCLICAL: LAST DOSE (770 MG) PRIOR TO AE WAS ON 02/JUN/2022. LAST DOSE (680 MG) AD...
     Route: 065
     Dates: start: 20220602
  6. CARBOPLATIN [Suspect]
     Active Substance: CARBOPLATIN
     Indication: Breast cancer
     Dosage: LAST DOSE ( 770 MG) PRIOR TO AE WAS ON 02/JUN/2022. LAST DOSE (680 MG) ADMINISTERED PRIOR TO AE W...
     Route: 065
     Dates: start: 20221103
  7. CARBOPLATIN [Suspect]
     Active Substance: CARBOPLATIN
     Indication: Breast cancer
     Dosage: LAST DOSE (770 MG) PRIOR TO AE WAS ON 02/JUN/2022. LAST DOSE (680 MG) ADMINISTERED PRIOR TO AE WA...
     Route: 065
     Dates: start: 20220908
  8. PERTUZUMAB [Suspect]
     Active Substance: PERTUZUMAB
     Indication: Breast cancer
     Dosage: TIME INTERVAL: CYCLICAL: LAST DOSE ( 600 MG) PRIOR TO AE WAS ON 08/SEP/2022.?ON 03/NOV/2022, SHE ...
     Route: 065
     Dates: start: 20220908, end: 20221103
  9. PERTUZUMAB [Suspect]
     Active Substance: PERTUZUMAB
     Indication: Breast cancer
     Dosage: TIME INTERVAL: CYCLICAL: LAST DOSE ( 600 MG) PRIOR TO AE WAS ON 08/SEP/2022.?ON 03/NOV/2022, SHE ...
     Route: 065
     Dates: start: 20220707, end: 20221209
  10. PERTUZUMAB [Suspect]
     Active Substance: PERTUZUMAB
     Indication: Breast cancer
     Dosage: TIME INTERVAL: CYCLICAL: LAST DOSE PRIOR TO AE WAS ON 02/JUN/2022, DOSE WAS 1200MG
     Route: 065
     Dates: start: 20220602, end: 20220602

REACTIONS (3)
  - Leukopenia [Recovering/Resolving]
  - Anaemia [Recovering/Resolving]
  - General physical health deterioration [Recovering/Resolving]

NARRATIVE: CASE EVENT DATE: 20220607
